FAERS Safety Report 14226906 (Version 1)
Quarter: 2017Q4

REPORT INFORMATION
  Report Type: Spontaneous
  Country: FR (occurrence: FR)
  Receive Date: 20171127
  Receipt Date: 20171127
  Transmission Date: 20180321
  Serious: Yes (Hospitalization)
  Sender: FDA-Public Use
  Company Number: FR-JNJFOC-20171122786

PATIENT
  Age: 16 Year
  Sex: Female

DRUGS (3)
  1. VENTOLINE [Concomitant]
     Active Substance: ALBUTEROL
     Indication: ASTHMA
     Dosage: 100 UG/6 DOSES,1 DF 2 TIMES PER DAY (MORNING AND EVENING)
     Route: 055
  2. RISPERDAL [Suspect]
     Active Substance: RISPERIDONE
     Indication: MENTAL DISORDER
     Route: 048
     Dates: start: 201611, end: 201703
  3. INNOVAIR [Concomitant]
     Active Substance: BECLOMETHASONE DIPROPIONATE\FORMOTEROL
     Indication: ASTHMA
     Dosage: 100 UG/6 DOSES,1 DF 2 TIMES PER DAY (MORNING AND EVENING)
     Route: 055

REACTIONS (1)
  - Intracranial pressure increased [Recovered/Resolved]

NARRATIVE: CASE EVENT DATE: 20170320
